FAERS Safety Report 17076897 (Version 1)
Quarter: 2019Q4

REPORT INFORMATION
  Report Type: Spontaneous
  Country: US (occurrence: US)
  Receive Date: 20191126
  Receipt Date: 20191126
  Transmission Date: 20200122
  Serious: No
  Sender: FDA-Public Use
  Company Number: US-BAUSCH-BL-2019-059977

PATIENT
  Age: 90 Year
  Sex: Female
  Weight: 38.59 kg

DRUGS (4)
  1. PLAVIX [Concomitant]
     Active Substance: CLOPIDOGREL BISULFATE
     Indication: PRODUCT USED FOR UNKNOWN INDICATION
     Route: 048
  2. CRESTOR [Concomitant]
     Active Substance: ROSUVASTATIN CALCIUM
     Indication: PRODUCT USED FOR UNKNOWN INDICATION
     Route: 048
  3. BENAZEPRIL [Concomitant]
     Active Substance: BENAZEPRIL HYDROCHLORIDE
     Indication: PRODUCT USED FOR UNKNOWN INDICATION
     Route: 048
  4. PROLENSA [Suspect]
     Active Substance: BROMFENAC SODIUM
     Indication: POSTOPERATIVE CARE
     Dosage: USED THE MEDICATION THIS MORNING
     Route: 047
     Dates: start: 20191101

REACTIONS (5)
  - Accidental exposure to product [Unknown]
  - Dry mouth [Not Recovered/Not Resolved]
  - Product prescribing error [Unknown]
  - Taste disorder [Unknown]
  - Expired product administered [Unknown]

NARRATIVE: CASE EVENT DATE: 20191030
